FAERS Safety Report 7412648-0 (Version None)
Quarter: 2011Q2

REPORT INFORMATION
  Report Type: 
  Country: None (occurrence: None)
  Receive Date: 20110413
  Receipt Date: 20110407
  Transmission Date: 20111010
  Serious: No
  Sender: FDA-Public Use
  Company Number: US-PFIZER INC-2011012359

PATIENT
  Sex: Female
  Weight: 54.4 kg

DRUGS (5)
  1. ZITHROMAX [Suspect]
     Indication: UPPER RESPIRATORY TRACT INFECTION
     Dosage: 600 MG, 1X/DAY
     Route: 048
     Dates: start: 20110115
  2. ZITHROMAX [Suspect]
     Indication: BRONCHITIS
  3. XOPENEX [Concomitant]
     Indication: BRONCHIAL HYPERREACTIVITY
     Dosage: UNK
  4. ZITHROMAX [Suspect]
     Indication: SINUSITIS
  5. ZITHROMAX [Suspect]
     Indication: COUGH

REACTIONS (3)
  - ASTHMA [None]
  - DIARRHOEA [None]
  - ABDOMINAL PAIN UPPER [None]
